FAERS Safety Report 9932638 (Version 1)
Quarter: 2014Q1

REPORT INFORMATION
  Report Type: Spontaneous
  Country: US (occurrence: US)
  Receive Date: 20140228
  Receipt Date: 20140228
  Transmission Date: 20141002
  Serious: No
  Sender: FDA-Public Use
  Company Number: US-ABBVIE-13P-163-1066188-00

PATIENT
  Age: 57 Year
  Sex: Male
  Weight: 93.07 kg

DRUGS (6)
  1. ANDROGEL [Suspect]
     Indication: BLOOD TESTOSTERONE DECREASED
     Dosage: 1 PACKET
     Dates: end: 201002
  2. ANDROGEL [Suspect]
     Dates: start: 20130224
  3. ANDROGEL [Suspect]
     Dates: start: 20130225
  4. HYDROCODONE [Concomitant]
     Indication: ARTHRALGIA
  5. LANSOPRAZOLE [Concomitant]
     Indication: GASTROOESOPHAGEAL REFLUX DISEASE
  6. DIAZEPAM [Concomitant]
     Indication: INSOMNIA

REACTIONS (4)
  - Expired drug administered [Recovered/Resolved]
  - Arthritis [Not Recovered/Not Resolved]
  - Arthralgia [Not Recovered/Not Resolved]
  - Local swelling [Not Recovered/Not Resolved]
